FAERS Safety Report 20997875 (Version 18)
Quarter: 2022Q4

REPORT INFORMATION
  Report Type: Report from Study
  Country: NL (occurrence: None)
  Receive Date: 20220623
  Receipt Date: 20221121
  Transmission Date: 20230113
  Serious: Yes (Hospitalization)
  Sender: FDA-Public Use
  Company Number: NL-Eisai Medical Research-EC-2022-117600

PATIENT
  Age: 51 Year
  Sex: Female
  Weight: 71.8 kg

DRUGS (9)
  1. LENVATINIB [Suspect]
     Active Substance: LENVATINIB
     Indication: Bile duct cancer
     Route: 048
     Dates: start: 20220603, end: 20220615
  2. LENVATINIB [Suspect]
     Active Substance: LENVATINIB
     Dosage: STARTING DOSE AT 20 MG, FLUCTUATED DOSAGE.
     Route: 048
     Dates: start: 20220624
  3. PEMBROLIZUMAB [Suspect]
     Active Substance: PEMBROLIZUMAB
     Indication: Bile duct cancer
     Route: 041
     Dates: start: 20220603, end: 20220603
  4. PEMBROLIZUMAB [Suspect]
     Active Substance: PEMBROLIZUMAB
     Route: 041
     Dates: start: 20220722
  5. BELZUTIFAN [Suspect]
     Active Substance: BELZUTIFAN
     Indication: Bile duct cancer
     Route: 048
     Dates: start: 20220603, end: 20220615
  6. BELZUTIFAN [Suspect]
     Active Substance: BELZUTIFAN
     Dosage: STARTING DOSE AT 120 MG, FLUCTUATED DOSAGE.
     Route: 048
     Dates: start: 20220624
  7. MAGNESIUM [Concomitant]
     Active Substance: MAGNESIUM
     Dates: start: 20210611
  8. CICLOPIROX [Concomitant]
     Active Substance: CICLOPIROX
     Dates: start: 20220517
  9. COSMETICS [Concomitant]
     Active Substance: COSMETICS
     Dates: start: 20220131

REACTIONS (1)
  - Febrile neutropenia [Recovered/Resolved]

NARRATIVE: CASE EVENT DATE: 20220615
